FAERS Safety Report 8943461 (Version 2)
Quarter: 2012Q4

REPORT INFORMATION
  Report Type: 
  Country: DE (occurrence: DE)
  Receive Date: 20121203
  Receipt Date: 20121214
  Transmission Date: 20130627
  Serious: Yes (Other)
  Sender: FDA-Public Use
  Company Number: DE-CELGENEUS-062-21880-12112790

PATIENT

DRUGS (15)
  1. REVLIMID [Suspect]
     Indication: MULTIPLE MYELOMA
     Route: 048
  2. MELPHALAN [Suspect]
     Indication: MULTIPLE MYELOMA
     Dosage: 140-200
     Route: 065
     Dates: start: 2003, end: 2008
  3. PAMIDRONATE [Suspect]
     Indication: DRUG USE FOR UNKNOWN INDICATION
     Route: 041
     Dates: start: 2003, end: 2008
  4. PAMIDRONATE [Suspect]
     Route: 041
     Dates: start: 2003, end: 2008
  5. PAMIDRONATE [Suspect]
     Route: 041
     Dates: start: 2003, end: 2008
  6. ZOLEDRONIC ACID [Suspect]
     Indication: DRUG USE FOR UNKNOWN INDICATION
     Route: 041
     Dates: start: 2003, end: 2008
  7. ZOLEDRONIC ACID [Suspect]
     Route: 041
     Dates: start: 2003, end: 2008
  8. ZOLEDRONIC ACID [Suspect]
     Route: 041
     Dates: start: 2003, end: 2008
  9. IBANDRONATE SODIUM [Suspect]
     Indication: DRUG USE FOR UNKNOWN INDICATION
     Route: 041
     Dates: start: 2003, end: 2008
  10. IBANDRONATE SODIUM [Suspect]
     Route: 041
     Dates: start: 2003, end: 2008
  11. IBANDRONATE SODIUM [Suspect]
     Route: 041
     Dates: start: 2003, end: 2008
  12. CLODRONATE [Suspect]
     Indication: DRUG USE FOR UNKNOWN INDICATION
     Dosage: 800 Milligram
     Route: 048
     Dates: start: 2003, end: 2008
  13. CLODRONATE [Suspect]
     Dosage: 1600 Milligram
     Route: 048
     Dates: start: 2003, end: 2008
  14. RED BLOOD CELLS [Concomitant]
     Indication: DRUG USE FOR UNKNOWN INDICATION
     Route: 065
     Dates: start: 2003, end: 2008
  15. PLATELETS [Concomitant]
     Indication: DRUG USE FOR UNKNOWN INDICATION
     Route: 065
     Dates: start: 2003, end: 2008

REACTIONS (2)
  - Osteonecrosis of jaw [Unknown]
  - Neutropenia [Unknown]
